FAERS Safety Report 5031869-8 (Version None)
Quarter: 2006Q2

REPORT INFORMATION
  Report Type: 
  Country: None (occurrence: None)
  Receive Date: 20060621
  Receipt Date: 20060302
  Transmission Date: 20061013
  Serious: No
  Sender: FDA-Public Use
  Company Number: US-AMGEN-US170926

PATIENT
  Sex: Female
  Weight: 99.9 kg

DRUGS (4)
  1. ARANESP [Suspect]
     Indication: ANAEMIA OF MALIGNANT DISEASE
     Route: 058
     Dates: start: 20050927
  2. MEDICINALPRODUCT NOT SPECIFIED BY SENDER [Concomitant]
     Dates: start: 20050525, end: 20051011
  3. MEDICINALPRODUCT NOT SPECIFIED BY SENDER [Concomitant]
     Dates: start: 20050525, end: 20051011
  4. MEDICINALPRODUCT NOT SPECIFIED BY SENDER [Concomitant]
     Dates: start: 20050525, end: 20051011

REACTIONS (2)
  - THERAPEUTIC RESPONSE DECREASED [None]
  - THROMBOCYTOPENIA [None]
